FAERS Safety Report 11952196 (Version 1)
Quarter: 2016Q1

REPORT INFORMATION
  Report Type: Spontaneous
  Country: TR (occurrence: TR)
  Receive Date: 20160126
  Receipt Date: 20160126
  Transmission Date: 20160526
  Serious: Yes (Death, Other)
  Sender: FDA-Public Use
  Company Number: TR-BAYER-2016-010059

PATIENT
  Age: 82 Year
  Sex: Female

DRUGS (2)
  1. WARFARIN [Interacting]
     Active Substance: WARFARIN
     Indication: ANTICOAGULANT THERAPY
  2. ACETYLSALICYLIC ACID({=100 MG) [Suspect]
     Active Substance: ASPIRIN
     Indication: ANTICOAGULANT THERAPY
     Dosage: UNK

REACTIONS (7)
  - Atrial fibrillation [None]
  - Drug ineffective [None]
  - Mitral valve incompetence [Recovered/Resolved]
  - Labelled drug-drug interaction medication error [None]
  - Haemorrhagic stroke [Fatal]
  - Cerebral infarction [None]
  - Atrial thrombosis [None]
